FAERS Safety Report 17533928 (Version 42)
Quarter: 2025Q1

REPORT INFORMATION
  Report Type: Report from Study
  Country: US (occurrence: US)
  Receive Date: 20200312
  Receipt Date: 20250311
  Transmission Date: 20250408
  Serious: Yes (Hospitalization, Other)
  Sender: TAKEDA
  Company Number: US-SHIRE-US202009402

PATIENT
  Sex: Female
  Weight: 45 kg

DRUGS (32)
  1. HUMAN IMMUNOGLOBULIN G [Suspect]
     Active Substance: HUMAN IMMUNOGLOBULIN G
     Indication: Primary immunodeficiency syndrome
     Dosage: 16 GRAM, Q2WEEKS
     Dates: start: 20200122
  2. HUMAN IMMUNOGLOBULIN G [Suspect]
     Active Substance: HUMAN IMMUNOGLOBULIN G
     Indication: Combined immunodeficiency
     Dosage: 16 GRAM, Q2WEEKS
  3. DIPHENHYDRAMINE [Concomitant]
     Active Substance: DIPHENHYDRAMINE
  4. LIDOCAINE [Concomitant]
     Active Substance: LIDOCAINE
  5. EPINEPHRINE [Concomitant]
     Active Substance: EPINEPHRINE
  6. ASACOL [Concomitant]
     Active Substance: MESALAMINE
  7. FLONASE [Concomitant]
     Active Substance: FLUTICASONE PROPIONATE
     Indication: Product used for unknown indication
  8. IPRATROPIUM BROMIDE [Concomitant]
     Active Substance: IPRATROPIUM BROMIDE
  9. IBUPROFEN [Concomitant]
     Active Substance: IBUPROFEN
  10. LEVOTHYROXINE [Concomitant]
     Active Substance: LEVOTHYROXINE
  11. FOLIC ACID [Concomitant]
     Active Substance: FOLIC ACID
  12. CALCIUM [Concomitant]
     Active Substance: CALCIUM
  13. OMEPRAZOLE [Concomitant]
     Active Substance: OMEPRAZOLE
  14. VITAMIN D3 [Concomitant]
     Active Substance: CHOLECALCIFEROL
  15. PRAMOXINE HC [Concomitant]
  16. TACLONEX [Concomitant]
     Active Substance: BETAMETHASONE DIPROPIONATE\CALCIPOTRIENE\CALCIPOTRIENE HYDRATE
  17. RITUXAN [Concomitant]
     Active Substance: RITUXIMAB
  18. XOPENEX [Concomitant]
     Active Substance: LEVALBUTEROL HYDROCHLORIDE
     Indication: Product used for unknown indication
  19. MUCINEX [Concomitant]
     Active Substance: GUAIFENESIN
  20. VICODIN [Concomitant]
     Active Substance: ACETAMINOPHEN\HYDROCODONE BITARTRATE
     Indication: Product used for unknown indication
  21. JOLESSA [Concomitant]
     Active Substance: ETHINYL ESTRADIOL\LEVONORGESTREL
     Indication: Product used for unknown indication
  22. FLUTICASONE PROPIONATE [Concomitant]
     Active Substance: FLUTICASONE PROPIONATE
  23. LEVALBUTEROL TARTRATE [Concomitant]
     Active Substance: LEVALBUTEROL TARTRATE
  24. HYDROCORTISONE [Concomitant]
     Active Substance: HYDROCORTISONE
     Indication: Product used for unknown indication
  25. METOPROLOL TARTRATE [Concomitant]
     Active Substance: METOPROLOL TARTRATE
  26. ELIQUIS [Concomitant]
     Active Substance: APIXABAN
  27. DIFLUCAN [Concomitant]
     Active Substance: FLUCONAZOLE
  28. TYLENOL [Concomitant]
     Active Substance: ACETAMINOPHEN
  29. TRAMADOL HCL [Concomitant]
     Active Substance: TRAMADOL HYDROCHLORIDE
  30. DIPHENHYDRAMINE HYDROCHLORIDE [Concomitant]
     Active Substance: DIPHENHYDRAMINE HYDROCHLORIDE
  31. UNSPECIFIED INGREDIENT [Concomitant]
     Active Substance: UNSPECIFIED INGREDIENT
  32. ACETAMINOPHEN [Concomitant]
     Active Substance: ACETAMINOPHEN

REACTIONS (40)
  - Gastrointestinal infection [Unknown]
  - Gastrointestinal disorder [Unknown]
  - Arthritis infective [Unknown]
  - Respiratory tract infection [Unknown]
  - Device related infection [Unknown]
  - Gastric ulcer [Unknown]
  - Tenosynovitis [Unknown]
  - Respiratory tract infection viral [Unknown]
  - Thrombosis [Unknown]
  - Ear infection [Unknown]
  - Candida infection [Unknown]
  - Dehydration [Unknown]
  - Rhinovirus infection [Unknown]
  - Illness [Unknown]
  - Hypoaesthesia oral [Unknown]
  - Tongue disorder [Unknown]
  - Infection [Unknown]
  - Chronic sinusitis [Unknown]
  - Parainfluenzae virus infection [Unknown]
  - Wrong technique in product usage process [Unknown]
  - Product prescribing issue [Unknown]
  - Product dose omission issue [Unknown]
  - Device issue [Unknown]
  - Dermatitis contact [Unknown]
  - Weight decreased [Unknown]
  - Psoriasis [Unknown]
  - Insurance issue [Unknown]
  - Contusion [Unknown]
  - Asthma [Unknown]
  - Night sweats [Unknown]
  - Upper respiratory tract infection [Unknown]
  - Sinusitis [Unknown]
  - Heart rate increased [Unknown]
  - Infusion site mass [Unknown]
  - Infusion site pruritus [Unknown]
  - Dyspnoea [Unknown]
  - Vomiting [Unknown]
  - Dizziness [Unknown]
  - Diarrhoea [Unknown]
  - Fatigue [Unknown]
